FAERS Safety Report 7782319-X (Version None)
Quarter: 2011Q3

REPORT INFORMATION
  Report Type: 
  Country: None (occurrence: None)
  Receive Date: 20110927
  Receipt Date: 20110914
  Transmission Date: 20111222
  Serious: Yes (Hospitalization, Other)
  Sender: FDA-Public Use
  Company Number: CA-ELI_LILLY_AND_COMPANY-CA201109003697

PATIENT
  Sex: Female

DRUGS (14)
  1. TRAZODONE HYDROCHLORIDE [Concomitant]
  2. SEROQUEL [Concomitant]
  3. IMOVANE [Concomitant]
  4. ZYPREXA [Suspect]
     Dosage: 5 MG, QD
  5. RESTORIL [Concomitant]
  6. AMITRIPTYLINE HCL [Concomitant]
  7. PROCHLORPERAZINE [Concomitant]
  8. DEXADRIN [Concomitant]
  9. ZYPREXA [Suspect]
     Indication: BIPOLAR DISORDER
     Dosage: 2.5 MG, QD
  10. ZYPREXA [Suspect]
     Dosage: .5 MG, UNKNOWN
  11. ZYPREXA [Suspect]
     Dosage: 7.5 MG, QD
  12. RITALIN [Concomitant]
  13. LANSOPRAZOLE [Concomitant]
  14. BENZTROPINE MESYLATE [Concomitant]

REACTIONS (31)
  - IMPAIRED GASTRIC EMPTYING [None]
  - TACHYCARDIA [None]
  - DIABETIC COMA [None]
  - HYPERTENSION [None]
  - IMPAIRED HEALING [None]
  - SYNCOPE [None]
  - PANCREATIC ATROPHY [None]
  - PANCREATITIS [None]
  - NEUTROPHILIA [None]
  - DIABETIC KETOACIDOSIS [None]
  - DIABETIC NEUROPATHY [None]
  - ULCERATIVE KERATITIS [None]
  - DEHYDRATION [None]
  - CEREBROVASCULAR ACCIDENT [None]
  - CROHN'S DISEASE [None]
  - CONVULSION [None]
  - TYPE 1 DIABETES MELLITUS [None]
  - PLATELET COUNT DECREASED [None]
  - HAEMOGLOBIN DECREASED [None]
  - MUSCULAR WEAKNESS [None]
  - CONTUSION [None]
  - HAEMATOCRIT DECREASED [None]
  - UPPER RESPIRATORY TRACT INFECTION [None]
  - HYPOGLYCAEMIA [None]
  - PALPITATIONS [None]
  - WEIGHT INCREASED [None]
  - BLINDNESS [None]
  - DIABETIC RETINOPATHY [None]
  - ADRENAL DISORDER [None]
  - GALACTORRHOEA [None]
  - ABDOMINAL PAIN [None]
